FAERS Safety Report 14930002 (Version 1)
Quarter: 2018Q2

REPORT INFORMATION
  Report Type: Spontaneous
  Country: US (occurrence: US)
  Receive Date: 20180504
  Receipt Date: 20180504
  Transmission Date: 20180711
  Serious: No
  Sender: FDA-Public Use
  Company Number: None

PATIENT
  Age: 31 Year
  Sex: Female

DRUGS (1)
  1. ENOXAPARIN SYR 40MG/0.4ML [Suspect]
     Active Substance: ENOXAPARIN

REACTIONS (2)
  - Contusion [None]
  - Injection site reaction [None]

NARRATIVE: CASE EVENT DATE: 20180504
